FAERS Safety Report 9783704 (Version 1)
Quarter: 2013Q4

REPORT INFORMATION
  Report Type: Spontaneous
  Country: US (occurrence: US)
  Receive Date: 20131226
  Receipt Date: 20131226
  Transmission Date: 20140711
  Serious: No
  Sender: FDA-Public Use
  Company Number: US-PFIZER INC-2013366599

PATIENT
  Sex: 0

DRUGS (2)
  1. NEURONTIN [Suspect]
     Indication: NEURALGIA
     Dosage: 600 MG/ DAY
  2. NEURONTIN [Suspect]
     Dosage: 3200 MG, A DAY
     Dates: start: 2013

REACTIONS (2)
  - Drug ineffective [Unknown]
  - Oliguria [Unknown]
